FAERS Safety Report 23021965 (Version 1)
Quarter: 2023Q4

REPORT INFORMATION
  Report Type: Spontaneous
  Country: IT (occurrence: IT)
  Receive Date: 20231003
  Receipt Date: 20231003
  Transmission Date: 20240110
  Serious: Yes (Other)
  Sender: FDA-Public Use
  Company Number: IT-SUN PHARMACEUTICAL INDUSTRIES LTD-2023R1-410683

PATIENT
  Age: 59 Year
  Sex: Male

DRUGS (1)
  1. METOPROLOL [Suspect]
     Active Substance: METOPROLOL
     Indication: Interventricular septum rupture
     Dosage: 100 MILLIGRAM, BID
     Route: 065

REACTIONS (2)
  - Cardiomyopathy [Unknown]
  - Drug ineffective [Unknown]
